FAERS Safety Report 4591787-6 (Version None)
Quarter: 2005Q1

REPORT INFORMATION
  Report Type: 
  Country: None (occurrence: None)
  Receive Date: 20050222
  Receipt Date: 20050209
  Transmission Date: 20050727
  Serious: Yes (Other)
  Sender: FDA-Public Use
  Company Number: 2005029860

PATIENT
  Sex: Male

DRUGS (2)
  1. HYDROCORTISONE [Suspect]
     Indication: URINE OUTPUT DECREASED
     Dosage: INTRAVENOUS
     Route: 042
  2. CEFMETAZOLE (CEFMETAZOLE) [Concomitant]

REACTIONS (2)
  - BLOOD SODIUM DECREASED [None]
  - NECROTISING ENTEROCOLITIS NEONATAL [None]
